FAERS Safety Report 5537003-X (Version None)
Quarter: 2007Q4

REPORT INFORMATION
  Report Type: 
  Country: None (occurrence: None)
  Receive Date: 20071207
  Receipt Date: 20071127
  Transmission Date: 20080405
  Serious: Yes (Hospitalization)
  Sender: FDA-Public Use
  Company Number: US-JNJFOC-20071110572

PATIENT
  Sex: Female
  Weight: 59.88 kg

DRUGS (13)
  1. DURAGESIC-100 [Suspect]
     Indication: PAIN
     Route: 062
  2. FOLIC ACID [Concomitant]
     Indication: MEDICAL DIET
     Route: 048
  3. NEURONTIN [Concomitant]
     Indication: NEURALGIA
     Route: 048
  4. PLAVIX [Concomitant]
     Indication: ANTICOAGULANT THERAPY
     Route: 048
  5. BENAZEPRIL HYDROCHLORIDE [Concomitant]
     Indication: BLOOD PRESSURE
     Route: 048
  6. MAXZIDE [Concomitant]
     Indication: BLOOD PRESSURE
     Dosage: 37.5/ 25 MG, 71/2 TABLET EVERY DAY
     Route: 048
  7. VALIUM [Concomitant]
     Indication: MUSCLE SPASMS
     Route: 048
  8. ASPIRIN [Concomitant]
     Indication: ANTICOAGULANT THERAPY
     Route: 048
  9. AMLODIPINE BESYLATE [Concomitant]
     Indication: BLOOD PRESSURE
     Route: 048
  10. PEPCID [Concomitant]
     Indication: GASTROOESOPHAGEAL REFLUX DISEASE
     Route: 048
  11. CENTRUM [Concomitant]
     Indication: VITAMIN SUPPLEMENTATION
     Route: 048
  12. CALTRATE [Concomitant]
     Indication: MEDICAL DIET
     Route: 048
  13. CATAPRES [Concomitant]
     Indication: BLOOD PRESSURE
     Route: 062

REACTIONS (5)
  - ABASIA [None]
  - BLOOD POTASSIUM DECREASED [None]
  - MALAISE [None]
  - MOVEMENT DISORDER [None]
  - PAIN [None]
